FAERS Safety Report 22286418 (Version 1)
Quarter: 2023Q2

REPORT INFORMATION
  Report Type: Spontaneous
  Country: CZ (occurrence: CZ)
  Receive Date: 20230505
  Receipt Date: 20230505
  Transmission Date: 20230722
  Serious: Yes (Other)
  Sender: FDA-Public Use
  Company Number: CZ-RECORDATI-2023002318

PATIENT
  Age: 31 Year
  Sex: Female

DRUGS (1)
  1. METOPROLOL [Suspect]
     Active Substance: METOPROLOL
     Indication: Heart rate abnormal
     Dosage: UNK
     Route: 042

REACTIONS (2)
  - Blood pressure decreased [Recovered/Resolved]
  - Exposure during pregnancy [Recovered/Resolved]
